FAERS Safety Report 9333507 (Version 1)
Quarter: 2013Q2

REPORT INFORMATION
  Report Type: Spontaneous
  Country: US (occurrence: None)
  Receive Date: 20130604
  Receipt Date: 20130604
  Transmission Date: 20140414
  Serious: Yes (Hospitalization, Other)
  Sender: FDA-Public Use
  Company Number: 2013AP005668

PATIENT
  Age: 73 Year
  Sex: Female

DRUGS (6)
  1. SERTRALINE HYDROCHLORIDE TABLETS [Suspect]
     Indication: DEPRESSION
  2. PROCHLORPERAZINE [Suspect]
     Indication: NAUSEA
  3. PROCHLORPERAZINE [Suspect]
     Indication: VOMITING
  4. IFOSFAMIDE [Suspect]
     Indication: MUELLER^S MIXED TUMOUR
  5. METHYLTHIONINIUM [Concomitant]
  6. CHLORIDE [Concomitant]

REACTIONS (6)
  - Neurotoxicity [None]
  - Serotonin syndrome [None]
  - Nausea [None]
  - Vomiting [None]
  - Unresponsive to stimuli [None]
  - Drug interaction [None]
